FAERS Safety Report 12842342 (Version 2)
Quarter: 2016Q4

REPORT INFORMATION
  Report Type: Spontaneous
  Country: US (occurrence: US)
  Receive Date: 20161013
  Receipt Date: 20161201
  Transmission Date: 20170207
  Serious: Yes (Other)
  Sender: FDA-Public Use
  Company Number: US-ROCHE-1754160

PATIENT
  Sex: Male

DRUGS (10)
  1. BENZONATATE. [Concomitant]
     Active Substance: BENZONATATE
     Route: 065
  2. AZITHROMYCIN ANHYDROUS. [Concomitant]
     Active Substance: AZITHROMYCIN ANHYDROUS
     Route: 065
  3. XARELTO [Concomitant]
     Active Substance: RIVAROXABAN
     Route: 065
  4. POTASSIUM CHLORIDE. [Concomitant]
     Active Substance: POTASSIUM CHLORIDE
     Route: 065
  5. SIMVASTATIN. [Concomitant]
     Active Substance: SIMVASTATIN
     Route: 065
  6. ERIVEDGE [Suspect]
     Active Substance: VISMODEGIB
     Indication: BASAL CELL CARCINOMA
     Dosage: TAKE 1 CAPSULE BY MOUTH EVERYDAY
     Route: 048
     Dates: start: 20160429
  7. ERIVEDGE [Suspect]
     Active Substance: VISMODEGIB
     Dosage: TAKE 1 CAPSULE BY MOUTH EVERYDAY
     Route: 048
     Dates: start: 20160426
  8. GLIPIZIDE. [Concomitant]
     Active Substance: GLIPIZIDE
     Route: 065
  9. LEVOCETIRIZIN [Concomitant]
     Active Substance: LEVOCETIRIZINE DIHYDROCHLORIDE
     Route: 065
  10. PAROXETINE. [Concomitant]
     Active Substance: PAROXETINE
     Route: 065

REACTIONS (3)
  - Neoplasm malignant [Not Recovered/Not Resolved]
  - Fatigue [Not Recovered/Not Resolved]
  - Ageusia [Not Recovered/Not Resolved]
